FAERS Safety Report 5770408-0 (Version None)
Quarter: 2008Q2

REPORT INFORMATION
  Report Type: 
  Country: None (occurrence: None)
  Receive Date: 20080613
  Receipt Date: 20080430
  Transmission Date: 20081010
  Serious: No
  Sender: FDA-Public Use
  Company Number: US-ABBOTT-08P-163-0450025-00

PATIENT
  Sex: Female
  Weight: 72.64 kg

DRUGS (14)
  1. HUMIRA [Suspect]
     Indication: RHEUMATOID ARTHRITIS
     Route: 058
     Dates: start: 20070601
  2. HUMIRA [Suspect]
     Dosage: SYRINGE, 1 TIME
  3. PREDNISONE TAB [Concomitant]
     Indication: RHEUMATOID ARTHRITIS
     Dosage: 5 MG IN THE AM AND 5.0 MG IN THE PM
     Route: 048
     Dates: start: 20010101
  4. FOLIC ACID [Concomitant]
     Indication: RHEUMATOID ARTHRITIS
     Route: 048
     Dates: start: 20070601
  5. METHOTREXATE [Concomitant]
     Indication: RHEUMATOID ARTHRITIS
     Dosage: 4 PILLS WEEKLY ON MONDAYS
     Route: 048
     Dates: start: 20070601
  6. ASPIRIN [Concomitant]
     Indication: CARDIOVASCULAR EVENT PROPHYLAXIS
     Route: 048
     Dates: start: 20070501
  7. CITALPRAN [Concomitant]
     Indication: DEPRESSION
     Route: 048
     Dates: start: 20070501
  8. TRIZADONE [Concomitant]
     Indication: SLEEP DISORDER
     Dosage: DAILY AT NIGHT
     Route: 048
     Dates: start: 20070501
  9. LORAZEPAM [Concomitant]
     Indication: NERVOUSNESS
     Route: 048
     Dates: start: 20070501
  10. FLORICET [Concomitant]
     Indication: HEADACHE
     Route: 048
     Dates: start: 20070501
  11. KENOLOG AND LIDOCAINE [Concomitant]
     Indication: BURSITIS
     Route: 050
     Dates: start: 20080417, end: 20080417
  12. HYDROCHLOROTHIAZIDE [Concomitant]
     Indication: HYPERTENSION
     Route: 048
     Dates: start: 20070501
  13. SIMVASTATIN [Concomitant]
     Indication: BLOOD CHOLESTEROL INCREASED
     Route: 048
     Dates: start: 20070501
  14. DEPO-MEDROL [Concomitant]
     Indication: BURSITIS
     Route: 050
     Dates: start: 20080421, end: 20080421

REACTIONS (3)
  - BURSITIS [None]
  - HEADACHE [None]
  - OBESITY [None]
